FAERS Safety Report 8961875 (Version 1)
Quarter: 2012Q4

REPORT INFORMATION
  Report Type: 
  Country: DE (occurrence: DE)
  Receive Date: 20121212
  Receipt Date: 20121212
  Transmission Date: 20130627
  Serious: Yes (Hospitalization)
  Sender: FDA-Public Use
  Company Number: GXKR2012DE003811

PATIENT
  Sex: Female

DRUGS (12)
  1. LEVOFLOXACIN [Suspect]
     Dosage: 500 mg, UNK
     Route: 048
  2. CITALOPRAM [Suspect]
     Indication: SEDATION
     Dosage: 10 mg, QD
     Route: 048
  3. L THYROXIN [Concomitant]
     Dosage: 100 ug, QD
     Route: 048
  4. PREDNISOLON [Concomitant]
     Dosage: 5 mg, QD
     Route: 048
  5. BISOPROLOL [Concomitant]
     Dosage: 5 mg, QD
     Route: 048
  6. AMLODIPIN//AMLODIPINE [Concomitant]
     Dosage: 5 mg, QD
     Route: 048
  7. HCT RATIOPHARM [Concomitant]
     Dosage: 12.5 mg, QD
     Route: 048
  8. OPIPRAMOL [Concomitant]
     Dosage: 100 mg, QD
     Route: 048
  9. QUENSYL [Concomitant]
     Dosage: UNK, QD
     Route: 048
  10. ASPIRIN PROTECT [Concomitant]
     Dosage: 100 mg, QD
     Route: 048
  11. PANTOPRAZOL [Concomitant]
     Dosage: 80 mg, QD
     Route: 048
  12. ASTHMA-SPRAY [Concomitant]
     Dosage: UNK, PRN

REACTIONS (4)
  - Panic attack [Not Recovered/Not Resolved]
  - Restlessness [Not Recovered/Not Resolved]
  - Trismus [Unknown]
  - Hypoaesthesia [Unknown]
